FAERS Safety Report 7350904-5 (Version None)
Quarter: 2011Q1

REPORT INFORMATION
  Report Type: 
  Country: None (occurrence: None)
  Receive Date: 20110314
  Receipt Date: 20110310
  Transmission Date: 20110831
  Serious: No
  Sender: FDA-Public Use
  Company Number: US-PFIZER INC-2011020928

PATIENT
  Sex: Female
  Weight: 54.4 kg

DRUGS (3)
  1. LYRICA [Suspect]
     Indication: PAIN IN EXTREMITY
     Dosage: 150 MG, 1X/DAY
     Route: 048
     Dates: start: 20070101, end: 20110125
  2. NAPROSYN [Concomitant]
     Dosage: UNK
  3. ZOLPIDEM [Concomitant]
     Dosage: UNK

REACTIONS (4)
  - FLATULENCE [None]
  - INSOMNIA [None]
  - DIARRHOEA [None]
  - NAUSEA [None]
